FAERS Safety Report 21046555 (Version 1)
Quarter: 2022Q3

REPORT INFORMATION
  Report Type: Spontaneous
  Country: SE (occurrence: SE)
  Receive Date: 20220706
  Receipt Date: 20220706
  Transmission Date: 20221027
  Serious: No
  Sender: FDA-Public Use
  Company Number: SE-ALKEM LABORATORIES LIMITED-SE-ALKEM-2022-03321

PATIENT
  Age: 50 Year
  Sex: Female

DRUGS (1)
  1. SIROLIMUS [Suspect]
     Active Substance: SIROLIMUS
     Indication: Transplant rejection
     Dosage: 2 MILLIGRAM
     Route: 065

REACTIONS (1)
  - Infection [Unknown]
